FAERS Safety Report 8769405 (Version 2)
Quarter: 2012Q4

REPORT INFORMATION
  Report Type: 
  Country: US (occurrence: US)
  Receive Date: 20120905
  Receipt Date: 20121108
  Transmission Date: 20130627
  Serious: Yes (Death)
  Sender: FDA-Public Use
  Company Number: US-PURDUE-USA-2012-0092215

PATIENT
  Sex: Male
  Weight: 88.89 kg

DRUGS (1)
  1. BUTRANS [Suspect]
     Indication: BACK PAIN
     Dosage: 20 mcg/hr, daily
     Route: 062
     Dates: start: 20120118, end: 201208

REACTIONS (1)
  - Completed suicide [Fatal]
